FAERS Safety Report 16938214 (Version 1)
Quarter: 2019Q4

REPORT INFORMATION
  Report Type: Spontaneous
  Country: US (occurrence: US)
  Receive Date: 20191018
  Receipt Date: 20191018
  Transmission Date: 20200122
  Serious: Yes (Other)
  Sender: FDA-Public Use
  Company Number: US-GILEAD-2019-0433559

PATIENT
  Age: 51 Year
  Sex: Male

DRUGS (14)
  1. BIKTARVY [Suspect]
     Active Substance: BICTEGRAVIR SODIUM\EMTRICITABINE\TENOFOVIR ALAFENAMIDE FUMARATE
     Indication: HIV INFECTION
     Route: 065
  2. ARMOUR THYROID [Concomitant]
     Active Substance: THYROID, PORCINE
  3. CIALIS [Concomitant]
     Active Substance: TADALAFIL
  4. TESTOSTERONE. [Concomitant]
     Active Substance: TESTOSTERONE
  5. VITAMIN D [VITAMIN D NOS] [Concomitant]
     Active Substance: VITAMIN D NOS
  6. VITAMIN K2 [MENATETRENONE] [Concomitant]
  7. COENZYME Q10 [Concomitant]
     Active Substance: UBIDECARENONE
  8. PREGNENOLONE [Concomitant]
     Active Substance: PREGNENOLONE
  9. XANAX [Concomitant]
     Active Substance: ALPRAZOLAM
  10. DHEA [Concomitant]
     Active Substance: PRASTERONE
  11. FISH OIL [Concomitant]
     Active Substance: FISH OIL
  12. AMBIEN [Concomitant]
     Active Substance: ZOLPIDEM TARTRATE
  13. VITAMIN B6 [Concomitant]
     Active Substance: PYRIDOXINE HYDROCHLORIDE
  14. TURMERIC [CURCUMA LONGA] [Concomitant]

REACTIONS (2)
  - HIV test positive [Unknown]
  - Drug ineffective [Unknown]
